FAERS Safety Report 4842520-1 (Version None)
Quarter: 2005Q4

REPORT INFORMATION
  Report Type: 
  Country: None (occurrence: None)
  Receive Date: 20051201
  Receipt Date: 20051125
  Transmission Date: 20060501
  Serious: Yes (Life-Threatening, Hospitalization)
  Sender: FDA-Public Use
  Company Number: FR-AVENTIS-200513889FR

PATIENT
  Age: 55 Year
  Sex: Female

DRUGS (4)
  1. RIFAMPIN AND ISONIAZID [Suspect]
     Indication: TUBERCULIN TEST POSITIVE
     Route: 048
     Dates: start: 20051105, end: 20051119
  2. RIFAMPIN AND ISONIAZID [Suspect]
     Route: 048
     Dates: start: 20051123, end: 20051123
  3. RIFAMPIN AND ISONIAZID [Suspect]
     Indication: EXPOSURE TO COMMUNICABLE DISEASE
     Route: 048
     Dates: start: 20051105, end: 20051119
  4. RIFAMPIN AND ISONIAZID [Suspect]
     Route: 048
     Dates: start: 20051123, end: 20051123

REACTIONS (20)
  - ANAPHYLACTIC SHOCK [None]
  - BLOOD CREATININE INCREASED [None]
  - CHILLS [None]
  - COAGULATION FACTOR V LEVEL DECREASED [None]
  - CONJUNCTIVAL HYPERAEMIA [None]
  - DERMATITIS EXFOLIATIVE [None]
  - DIARRHOEA [None]
  - DISSEMINATED INTRAVASCULAR COAGULATION [None]
  - ERYTHEMA [None]
  - HEPATIC FAILURE [None]
  - HYPOTENSION [None]
  - MALAISE [None]
  - NAUSEA [None]
  - PROTHROMBIN LEVEL DECREASED [None]
  - PRURITUS GENERALISED [None]
  - PYREXIA [None]
  - RHABDOMYOLYSIS [None]
  - SEPTIC SHOCK [None]
  - THROMBOCYTOPENIA [None]
  - VOMITING [None]
